FAERS Safety Report 15505000 (Version 2)
Quarter: 2018Q4

REPORT INFORMATION
  Report Type: Spontaneous
  Country: US (occurrence: US)
  Receive Date: 20181016
  Receipt Date: 20181016
  Transmission Date: 20190205
  Serious: Yes (Other)
  Sender: FDA-Public Use
  Company Number: US-SA-2018SA283618

PATIENT
  Age: 39 Year
  Sex: Male

DRUGS (1)
  1. LEMTRADA [Suspect]
     Active Substance: ALEMTUZUMAB
     Route: 041

REACTIONS (3)
  - Platelet count abnormal [Unknown]
  - Petechiae [Unknown]
  - Neutropenia [Unknown]

NARRATIVE: CASE EVENT DATE: 20180928
